FAERS Safety Report 20958713 (Version 1)
Quarter: 2022Q2

REPORT INFORMATION
  Report Type: Spontaneous
  Country: US (occurrence: None)
  Receive Date: 20220614
  Receipt Date: 20220614
  Transmission Date: 20220721
  Serious: Yes (unspecified)
  Sender: FDA-Public Use
  Company Number: None

PATIENT
  Age: 18 Year
  Sex: Female

DRUGS (1)
  1. .DELTA.8-TETRAHYDROCANNABINOL\CANNABIDIOL\HERBALS [Suspect]
     Active Substance: .DELTA.8-TETRAHYDROCANNABINOL\CANNABIDIOL\HERBALS

REACTIONS (3)
  - Overdose [None]
  - Unresponsive to stimuli [None]
  - Lethargy [None]

NARRATIVE: CASE EVENT DATE: 20220613
